FAERS Safety Report 7274210 (Version 7)
Quarter: 2014Q1

REPORT INFORMATION
  Report Type: Spontaneous
  Country: US (occurrence: US)
  Receive Date: 20100209
  Receipt Date: 20140130
  Transmission Date: 20141002
  Serious: Yes (Other)
  Sender: FDA-Public Use
  Company Number: US-JNJFOC-20100201988

PATIENT
  Sex: Female
  Weight: 62.6 kg

DRUGS (7)
  1. DURAGESIC [Suspect]
     Indication: INTERVERTEBRAL DISC PROTRUSION
     Route: 062
  2. DURAGESIC [Suspect]
     Indication: INTERVERTEBRAL DISC PROTRUSION
     Route: 062
     Dates: start: 1995, end: 200912
  3. DURAGESIC [Suspect]
     Indication: BACK PAIN
     Route: 062
  4. DURAGESIC [Suspect]
     Indication: BACK PAIN
     Route: 062
     Dates: start: 1995, end: 200912
  5. DURAGESIC [Suspect]
     Indication: BACK PAIN
     Route: 062
     Dates: start: 200912
  6. DURAGESIC [Suspect]
     Indication: PRODUCT USED FOR UNKNOWN INDICATION
     Route: 062
  7. DESERRIL [Concomitant]
     Indication: SLEEP DISORDER
     Dosage: DOSE: 100 TO 300 MG 1 TO 3 TIMES A DAY AS NEEDED
     Route: 048

REACTIONS (21)
  - Neoplasm malignant [Not Recovered/Not Resolved]
  - Depression [Not Recovered/Not Resolved]
  - Benign neoplasm [Recovered/Resolved]
  - Brain neoplasm [Unknown]
  - Nervous system disorder [Not Recovered/Not Resolved]
  - Dementia [Not Recovered/Not Resolved]
  - Amnesia [Not Recovered/Not Resolved]
  - Pneumonia [Not Recovered/Not Resolved]
  - Detoxification [Unknown]
  - Pain [Not Recovered/Not Resolved]
  - Product quality issue [Unknown]
  - Sensory loss [Not Recovered/Not Resolved]
  - Adverse event [Not Recovered/Not Resolved]
  - Bronchitis [Not Recovered/Not Resolved]
  - Back pain [Recovered/Resolved]
  - Peripheral sensory neuropathy [Not Recovered/Not Resolved]
  - Formication [Unknown]
  - Blood cholesterol increased [Not Recovered/Not Resolved]
  - Fall [Not Recovered/Not Resolved]
  - Contusion [Not Recovered/Not Resolved]
  - Drug ineffective [Unknown]
